FAERS Safety Report 19710838 (Version 1)
Quarter: 2021Q3

REPORT INFORMATION
  Report Type: Report from Study
  Country: DE (occurrence: DE)
  Receive Date: 20210817
  Receipt Date: 20210817
  Transmission Date: 20211014
  Serious: Yes (Other)
  Sender: FDA-Public Use
  Company Number: DE-MYLANLABS-2021M1051194

PATIENT
  Age: 85 Year
  Sex: Female

DRUGS (5)
  1. RITUXIMAB. [Suspect]
     Active Substance: RITUXIMAB
     Indication: RHEUMATOID ARTHRITIS
     Dosage: 1000 MG (SUBSEQUENT DOSES OF RITUXIMAB (NON ROCHE) ON /OCT2018, /JUN2019 /JAN2020 AND /SEP2020)
     Route: 065
     Dates: start: 201804
  2. METHOTREXATE. [Suspect]
     Active Substance: METHOTREXATE
     Dosage: 7.5 MILLIGRAM
     Route: 065
  3. METHOTREXATE. [Suspect]
     Active Substance: METHOTREXATE
     Indication: RHEUMATOID ARTHRITIS
     Dosage: 10 MILLIGRAM
     Route: 065
  4. RITUXIMAB. [Suspect]
     Active Substance: RITUXIMAB
     Dosage: 1000 MILLIGRAM (SUBSEQUENT DOSES WAS RECEIVED ON /AUG/2016, /FEB/2017 AND /AUG/2017)
     Route: 065
     Dates: start: 201602
  5. METHOTREXATE. [Suspect]
     Active Substance: METHOTREXATE
     Dosage: 5 MILLIGRAM
     Route: 065

REACTIONS (1)
  - Bowen^s disease [Unknown]

NARRATIVE: CASE EVENT DATE: 201910
